FAERS Safety Report 11392297 (Version 3)
Quarter: 2015Q3

REPORT INFORMATION
  Report Type: Spontaneous
  Country: US (occurrence: US)
  Receive Date: 20150818
  Receipt Date: 20150924
  Transmission Date: 20151125
  Serious: No
  Sender: FDA-Public Use
  Company Number: US-ACTELION PHARMACEUTICALS US, INC.-A-US2015-121220

PATIENT
  Age: 56 Year
  Sex: Female

DRUGS (2)
  1. VENTAVIS [Suspect]
     Active Substance: ILOPROST
     Indication: PULMONARY ARTERIAL HYPERTENSION
     Dosage: 2.5 MCG, 6-9X/DAY
     Route: 055
     Dates: start: 20150714
  2. VENTAVIS [Suspect]
     Active Substance: ILOPROST
     Dosage: 5 MCG, 6-9X/DAY
     Route: 055

REACTIONS (12)
  - Dizziness [Unknown]
  - Dizziness postural [Unknown]
  - Dyspnoea [Recovered/Resolved]
  - Throat irritation [Unknown]
  - Hypotension [Unknown]
  - Tongue discolouration [Recovered/Resolved]
  - Dysarthria [Recovered/Resolved]
  - Device issue [Unknown]
  - Syncope [Unknown]
  - Fatigue [Unknown]
  - Fall [Recovered/Resolved]
  - Stomatitis [Unknown]

NARRATIVE: CASE EVENT DATE: 20150717
